FAERS Safety Report 4939455-2 (Version None)
Quarter: 2006Q1

REPORT INFORMATION
  Report Type: 
  Country: None (occurrence: None)
  Receive Date: 20060306
  Receipt Date: 20051026
  Transmission Date: 20060701
  Serious: Yes (Hospitalization)
  Sender: FDA-Public Use
  Company Number: PHO-2005-015

PATIENT
  Age: 57 Year
  Sex: Female

DRUGS (5)
  1. PHOTOFRIN [Suspect]
     Indication: METASTASES TO PLEURA
     Dosage: 248 MG I.V.
     Route: 042
     Dates: start: 20050623, end: 20050623
  2. COUMADIN [Suspect]
     Dosage: PO
     Route: 048
     Dates: start: 20051014
  3. ATIVAN [Concomitant]
  4. PREVACID [Concomitant]
  5. LEVOFLOXACIN [Concomitant]

REACTIONS (8)
  - CARDIAC TAMPONADE [None]
  - DEEP VEIN THROMBOSIS [None]
  - DRUG INTERACTION [None]
  - FATIGUE [None]
  - INTERNATIONAL NORMALISED RATIO INCREASED [None]
  - NAUSEA [None]
  - PERICARDIAL EFFUSION [None]
  - PNEUMONIA [None]
